FAERS Safety Report 11518515 (Version 2)
Quarter: 2015Q4

REPORT INFORMATION
  Report Type: Spontaneous
  Country: US (occurrence: US)
  Receive Date: 20150917
  Receipt Date: 20151013
  Transmission Date: 20160304
  Serious: Yes (Hospitalization, Other)
  Sender: FDA-Public Use
  Company Number: US-BAYER-2015-418828

PATIENT
  Age: 65 Year
  Sex: Male

DRUGS (1)
  1. NEXAVAR [Suspect]
     Active Substance: SORAFENIB
     Indication: HEPATOCELLULAR CARCINOMA
     Dosage: UNK
     Route: 048
     Dates: start: 201508

REACTIONS (2)
  - Hypertension [Not Recovered/Not Resolved]
  - Hypertensive encephalopathy [None]

NARRATIVE: CASE EVENT DATE: 20150908
